FAERS Safety Report 22086773 (Version 1)
Quarter: 2023Q1

REPORT INFORMATION
  Report Type: Spontaneous
  Country: FR (occurrence: FR)
  Receive Date: 20230312
  Receipt Date: 20230312
  Transmission Date: 20230418
  Serious: Yes (Life-Threatening, Hospitalization)
  Sender: FDA-Public Use
  Company Number: None

PATIENT
  Age: 92 Year
  Sex: Female
  Weight: 39 kg

DRUGS (4)
  1. PREGABALIN [Suspect]
     Active Substance: PREGABALIN
     Indication: Wrong patient
     Dosage: 300 MG, (TOTAL)
     Route: 048
     Dates: start: 20230213, end: 20230213
  2. LEVETIRACETAM [Suspect]
     Active Substance: LEVETIRACETAM
     Indication: Wrong patient
     Dosage: 1250 MG, (TOTAL)
     Route: 048
     Dates: start: 20230213, end: 20230213
  3. CETIRIZINE HYDROCHLORIDE [Suspect]
     Active Substance: CETIRIZINE HYDROCHLORIDE
     Indication: Wrong patient
     Dosage: 10 MG, (TOTAL)
     Route: 048
     Dates: start: 20230213, end: 20230213
  4. DIGOXIN [Concomitant]
     Active Substance: DIGOXIN
     Indication: Cardiac failure
     Dosage: 0.13 MG, QD
     Route: 048

REACTIONS (6)
  - Miosis [Recovered/Resolved]
  - Altered state of consciousness [Recovered/Resolved]
  - Wrong patient [Recovered/Resolved]
  - Atrioventricular block [Recovered/Resolved]
  - Bradycardia [Recovered/Resolved]
  - Hypotension [Recovered/Resolved]

NARRATIVE: CASE EVENT DATE: 20230213
